FAERS Safety Report 17673469 (Version 53)
Quarter: 2021Q2

REPORT INFORMATION
  Report Type: Report from Study
  Country: IT (occurrence: IT)
  Receive Date: 20200415
  Receipt Date: 20210503
  Transmission Date: 20210716
  Serious: Yes (Other)
  Sender: FDA-Public Use
  Company Number: IT-PFIZER INC-2020094931

PATIENT
  Age: 73 Year
  Sex: Male
  Weight: 114 kg

DRUGS (112)
  1. AMLODIPINE BESILATE [Suspect]
     Active Substance: AMLODIPINE BESYLATE
     Dosage: 0.4MG UNKNOWN
     Route: 065
  2. NORVASC [Suspect]
     Active Substance: AMLODIPINE BESYLATE
     Dosage: UNK
     Route: 065
  3. FUROSEMIDE. [Suspect]
     Active Substance: FUROSEMIDE
     Dosage: 25.0MG UNKNOWN
     Route: 048
  4. CALCITRIOLO DOC [Suspect]
     Active Substance: CALCITRIOL
     Dosage: 0.25 MG
     Route: 048
  5. CALCITRIOLO DOC [Suspect]
     Active Substance: CALCITRIOL
     Dosage: UNK
     Route: 048
  6. CALCITRIOLO DOC [Suspect]
     Active Substance: CALCITRIOL
     Dosage: UNK
     Route: 048
  7. ALLOPURINOLO [Suspect]
     Active Substance: ALLOPURINOL
     Dosage: 100 MILLIGRAM
     Route: 048
  8. CARDIOASPIRIN [Suspect]
     Active Substance: ASPIRIN
     Dosage: UNK
     Route: 065
  9. ROCALTROL [Suspect]
     Active Substance: CALCITRIOL
     Dosage: 0.25 MILLIGRAM
     Route: 048
  10. TAMSULOSINA AUROBINDO [Suspect]
     Active Substance: TAMSULOSIN HYDROCHLORIDE
     Dosage: 0.4MG UNKNOWN
     Route: 065
  11. ALLOPURINOL TEVA [Suspect]
     Active Substance: ALLOPURINOL
     Dosage: 100 MILLIGRAM
     Route: 048
  12. ALLOPURINOL TEVA [Suspect]
     Active Substance: ALLOPURINOL
     Dosage: 100 MILLIGRAM
     Route: 048
  13. ELIQUIS [Suspect]
     Active Substance: APIXABAN
     Dosage: 10 MG, 1X/DAY
     Route: 048
     Dates: start: 20141031, end: 20200227
  14. ELIQUIS [Suspect]
     Active Substance: APIXABAN
     Dosage: 84.4 MG, 1X/DAY
     Route: 048
  15. ELIQUIS [Suspect]
     Active Substance: APIXABAN
     Dosage: 90 MG, 1X/DAY
     Route: 048
  16. NORVASC [Suspect]
     Active Substance: AMLODIPINE BESYLATE
     Dosage: UNK
     Route: 065
  17. NORVASC [Suspect]
     Active Substance: AMLODIPINE BESYLATE
     Dosage: UNK
     Route: 065
  18. CALCITRIOLO DOC [Suspect]
     Active Substance: CALCITRIOL
     Dosage: 0.25MG UNKNOWN
     Route: 048
  19. CALCITRIOLO DOC [Suspect]
     Active Substance: CALCITRIOL
     Dosage: 0.25 MG
     Route: 048
  20. ALLOPURINOLO [Suspect]
     Active Substance: ALLOPURINOL
     Dosage: 100.0MG UNKNOWN
     Route: 048
  21. ALLOPURINOLO [Suspect]
     Active Substance: ALLOPURINOL
     Dosage: 100.0MG UNKNOWN
     Route: 048
  22. ALLOPURINOLO [Suspect]
     Active Substance: ALLOPURINOL
     Dosage: 100.0MG UNKNOWN
     Route: 048
  23. ALLOPURINOLO [Suspect]
     Active Substance: ALLOPURINOL
     Dosage: 100.0MG UNKNOWN
     Route: 048
  24. ALLOPURINOLO [Suspect]
     Active Substance: ALLOPURINOL
     Dosage: 100 MILLIGRAM
     Route: 048
  25. ALLOPURINOLO [Suspect]
     Active Substance: ALLOPURINOL
     Dosage: 100 MILLIGRAM
     Route: 048
  26. CARDIOASPIRIN [Suspect]
     Active Substance: ASPIRIN
     Dosage: 100 MILLIGRAM
     Route: 065
  27. ROCALTROL [Suspect]
     Active Substance: CALCITRIOL
     Dosage: 3.0DF UNKNOWN
     Route: 048
  28. ROCALTROL [Suspect]
     Active Substance: CALCITRIOL
     Dosage: UNK
     Route: 048
  29. ROCALTROL [Suspect]
     Active Substance: CALCITRIOL
     Dosage: UNK
     Route: 048
  30. LASIX [Suspect]
     Active Substance: FUROSEMIDE
     Dosage: 25.0MG UNKNOWN
     Route: 048
  31. ALLOPURINOL TEVA [Suspect]
     Active Substance: ALLOPURINOL
     Dosage: UNK
     Route: 048
  32. AMLODIPINE BESILATE [Suspect]
     Active Substance: AMLODIPINE BESYLATE
     Dosage: 4 MG
     Route: 065
  33. ATENOLOL. [Suspect]
     Active Substance: ATENOLOL
     Dosage: 100 MG
     Route: 048
  34. ELIQUIS [Suspect]
     Active Substance: APIXABAN
     Indication: ATRIAL FIBRILLATION
     Dosage: 84.4 MG, 1X/DAY
     Route: 048
  35. ELIQUIS [Suspect]
     Active Substance: APIXABAN
     Dosage: 90 MG, 1X/DAY
     Route: 048
  36. CALCITRIOLO DOC [Suspect]
     Active Substance: CALCITRIOL
     Dosage: 3.0DF UNKNOWN
     Route: 065
  37. CALCITRIOLO DOC [Suspect]
     Active Substance: CALCITRIOL
     Dosage: UNK
     Route: 048
  38. CALCITRIOLO DOC [Suspect]
     Active Substance: CALCITRIOL
     Dosage: UNK
     Route: 048
  39. ROCALTROL [Suspect]
     Active Substance: CALCITRIOL
     Dosage: 0.25 MILLIGRAM
     Route: 048
  40. ROCALTROL [Suspect]
     Active Substance: CALCITRIOL
     Dosage: UNK
     Route: 048
  41. ROCALTROL [Suspect]
     Active Substance: CALCITRIOL
     Dosage: UNK
     Route: 048
  42. ASPIRIN [ACETYLSALICYLIC ACID] [Suspect]
     Active Substance: ASPIRIN
     Dosage: 100 MG
     Route: 065
  43. ASPIRIN [ACETYLSALICYLIC ACID] [Suspect]
     Active Substance: ASPIRIN
     Dosage: 100 MG
     Route: 065
  44. ASPIRIN (E.C.) [Suspect]
     Active Substance: ASPIRIN
     Dosage: 4 MILLIGRAM TABLET
     Route: 065
  45. ALLOPURINOL TEVA [Suspect]
     Active Substance: ALLOPURINOL
     Dosage: 100 MILLIGRAM
     Route: 048
  46. PERINDOPRIL ALMUS [Suspect]
     Active Substance: PERINDOPRIL
     Dosage: 4 MG
     Route: 065
  47. CALCITRIOLO DOC [Suspect]
     Active Substance: CALCITRIOL
     Dosage: 3 DF, UNK
     Route: 048
  48. CALCITRIOLO DOC [Suspect]
     Active Substance: CALCITRIOL
     Dosage: UNK
     Route: 048
  49. CALCITRIOLO DOC [Suspect]
     Active Substance: CALCITRIOL
     Dosage: 3.0DF UNKNOWN
     Route: 065
  50. CALCITRIOLO DOC [Suspect]
     Active Substance: CALCITRIOL
     Dosage: UNK
     Route: 048
  51. CALCITRIOLO DOC [Suspect]
     Active Substance: CALCITRIOL
     Dosage: UNK
     Route: 048
  52. ALLOPURINOLO [Suspect]
     Active Substance: ALLOPURINOL
     Dosage: 100.0MG UNKNOWN
     Route: 048
  53. CARDIOASPIRIN [Suspect]
     Active Substance: ASPIRIN
     Dosage: 100 MILLIGRAM
     Route: 065
  54. ROCALTROL [Suspect]
     Active Substance: CALCITRIOL
     Dosage: 0.25 MILLIGRAM
     Route: 048
  55. ROCALTROL [Suspect]
     Active Substance: CALCITRIOL
     Dosage: 0.25 MILLIGRAM
     Route: 048
  56. ROCALTROL [Suspect]
     Active Substance: CALCITRIOL
     Dosage: UNK
     Route: 048
  57. LASIX [Suspect]
     Active Substance: FUROSEMIDE
     Dosage: UNK
     Route: 048
  58. ASPIRIN [ACETYLSALICYLIC ACID] [Suspect]
     Active Substance: ASPIRIN
     Dosage: 100 MG
     Route: 065
  59. ALLOPURINOL TEVA [Suspect]
     Active Substance: ALLOPURINOL
     Dosage: 100 MILLIGRAM
     Route: 048
  60. PERINDOPRIL [Suspect]
     Active Substance: PERINDOPRIL
     Dosage: 4 MG
     Route: 065
  61. AMLODIPINE BESILATE [Suspect]
     Active Substance: AMLODIPINE BESYLATE
     Dosage: 0.4MG UNKNOWN
     Route: 065
  62. ELIQUIS [Suspect]
     Active Substance: APIXABAN
     Dosage: 10 MG, 1X/DAY
     Route: 048
     Dates: start: 20141031, end: 20200227
  63. NORVASC [Suspect]
     Active Substance: AMLODIPINE BESYLATE
     Dosage: 4 MG
     Route: 065
  64. CALCITRIOLO DOC [Suspect]
     Active Substance: CALCITRIOL
     Dosage: 3.0DF UNKNOWN
     Route: 048
  65. CALCITRIOLO DOC [Suspect]
     Active Substance: CALCITRIOL
     Dosage: UNK
     Route: 048
  66. CALCITRIOLO DOC [Suspect]
     Active Substance: CALCITRIOL
     Dosage: UNK
     Route: 048
  67. CALCITRIOLO DOC [Suspect]
     Active Substance: CALCITRIOL
     Dosage: UNK
     Route: 048
  68. CALCITRIOLO DOC [Suspect]
     Active Substance: CALCITRIOL
     Dosage: UNK
     Route: 048
  69. CALCITRIOLO DOC [Suspect]
     Active Substance: CALCITRIOL
     Dosage: UNK
     Route: 048
  70. CALCITRIOLO DOC [Suspect]
     Active Substance: CALCITRIOL
     Dosage: UNK
     Route: 048
  71. ROCALTROL [Suspect]
     Active Substance: CALCITRIOL
     Dosage: 0.25 MILLIGRAM
     Route: 048
  72. ROCALTROL [Suspect]
     Active Substance: CALCITRIOL
     Dosage: 0.25 MILLIGRAM
     Route: 048
  73. ROCALTROL [Suspect]
     Active Substance: CALCITRIOL
     Dosage: UNK
     Route: 048
  74. ASPIRIN [ACETYLSALICYLIC ACID] [Suspect]
     Active Substance: ASPIRIN
     Dosage: 100 MG
     Route: 007
  75. PERINDOPRIL ALMUS [Suspect]
     Active Substance: PERINDOPRIL
     Dosage: 4 MG
     Route: 065
  76. AMLODIPINE BESILATE [Suspect]
     Active Substance: AMLODIPINE BESYLATE
     Dosage: 0.4MG UNKNOWN
     Route: 065
  77. ELIQUIS [Suspect]
     Active Substance: APIXABAN
     Indication: CEREBROVASCULAR ACCIDENT PROPHYLAXIS
     Dosage: 10 MG, DAILY
     Route: 048
     Dates: start: 20141031, end: 20200227
  78. ELIQUIS [Suspect]
     Active Substance: APIXABAN
     Dosage: 84.4 MG, 1X/DAY
     Route: 048
  79. FUROSEMIDE. [Suspect]
     Active Substance: FUROSEMIDE
     Dosage: UNK
     Route: 065
  80. CALCITRIOLO DOC [Suspect]
     Active Substance: CALCITRIOL
     Dosage: 3.0DF UNKNOWN
     Route: 048
  81. CALCITRIOLO DOC [Suspect]
     Active Substance: CALCITRIOL
     Dosage: 0.25MG UNKNOWN
     Route: 048
  82. ALLOPURINOLO [Suspect]
     Active Substance: ALLOPURINOL
     Dosage: 100 MILLIGRAM
     Route: 048
  83. ALLOPURINOLO [Suspect]
     Active Substance: ALLOPURINOL
     Dosage: 100 MILLIGRAM
     Route: 048
  84. ROCALTROL [Suspect]
     Active Substance: CALCITRIOL
     Dosage: UNK
     Route: 048
  85. ASPIRIN [ACETYLSALICYLIC ACID] [Suspect]
     Active Substance: ASPIRIN
     Dosage: 100 MG
     Route: 007
  86. ASPIRIN [ACETYLSALICYLIC ACID] [Suspect]
     Active Substance: ASPIRIN
     Dosage: 100 MG
     Route: 065
  87. PERINDOPRIL ERBUMINE. [Suspect]
     Active Substance: PERINDOPRIL ERBUMINE
     Dosage: 4.0MG UNKNOWN
     Route: 065
  88. AMLODIPINE BESILATE [Suspect]
     Active Substance: AMLODIPINE BESYLATE
     Dosage: UNK
     Route: 065
  89. AMLODIPINE BESILATE [Suspect]
     Active Substance: AMLODIPINE BESYLATE
     Dosage: 0.4MG UNKNOWN
     Route: 065
  90. AMLODIPINE BESILATE [Suspect]
     Active Substance: AMLODIPINE BESYLATE
     Dosage: 0.4MG UNKNOWN
     Route: 065
  91. ATENOLOL. [Suspect]
     Active Substance: ATENOLOL
     Dosage: 100 MG
     Route: 048
  92. LANSOPRAZOLE. [Suspect]
     Active Substance: LANSOPRAZOLE
     Dosage: 15 MILLIGRAM
     Route: 065
  93. LANSOPRAZOLE. [Suspect]
     Active Substance: LANSOPRAZOLE
     Dosage: 15 MILLIGRAM
     Route: 065
  94. CALCITRIOLO DOC [Suspect]
     Active Substance: CALCITRIOL
     Dosage: UNK
     Route: 048
  95. CALCITRIOLO DOC [Suspect]
     Active Substance: CALCITRIOL
     Dosage: UNK
     Route: 048
  96. CALCITRIOLO DOC [Suspect]
     Active Substance: CALCITRIOL
     Dosage: UNK
     Route: 048
  97. ALLOPURINOLO [Suspect]
     Active Substance: ALLOPURINOL
     Dosage: 100.0MG UNKNOWN
     Route: 048
  98. CARDIOASPIRIN [Suspect]
     Active Substance: ASPIRIN
     Dosage: 100 MILLIGRAM
     Route: 065
  99. ROCALTROL [Suspect]
     Active Substance: CALCITRIOL
     Dosage: 0.25MG UNKNOWN
     Route: 048
  100. ROCALTROL [Suspect]
     Active Substance: CALCITRIOL
     Dosage: UNK
     Route: 048
  101. ROCALTROL [Suspect]
     Active Substance: CALCITRIOL
     Dosage: UNK
     Route: 048
  102. ALLOPURINOL TEVA [Suspect]
     Active Substance: ALLOPURINOL
     Dosage: 100 MILLIGRAM
     Route: 048
  103. PERINDOPRIL ERBUMINE. [Suspect]
     Active Substance: PERINDOPRIL ERBUMINE
     Dosage: 4 MG
     Route: 065
  104. AMLODIPINE BESILATE [Suspect]
     Active Substance: AMLODIPINE BESYLATE
     Dosage: 0.4MG UNKNOWN
     Route: 065
  105. ATENOLOL. [Suspect]
     Active Substance: ATENOLOL
     Dosage: 100 MG
     Route: 048
  106. ELIQUIS [Suspect]
     Active Substance: APIXABAN
     Indication: PROPHYLAXIS
     Dosage: 90 MG, 1X/DAY
     Route: 048
  107. CALCITRIOLO DOC [Suspect]
     Active Substance: CALCITRIOL
     Dosage: GENERIC?0.25 MG UNKNOWN
     Route: 048
  108. CALCITRIOLO DOC [Suspect]
     Active Substance: CALCITRIOL
     Dosage: UNK
     Route: 048
  109. ROCALTROL [Suspect]
     Active Substance: CALCITRIOL
     Dosage: 0.25 MILLIGRAM
     Route: 048
  110. ASPIRIN [ACETYLSALICYLIC ACID] [Suspect]
     Active Substance: ASPIRIN
     Dosage: 100 MG
     Route: 007
  111. ALLOPURINOL TEVA [Suspect]
     Active Substance: ALLOPURINOL
     Dosage: 100 MILLIGRAM
     Route: 048
  112. PERINDOPRIL ALMUS [Suspect]
     Active Substance: PERINDOPRIL
     Dosage: 4 MG
     Route: 065

REACTIONS (3)
  - Prescribed overdose [Recovered/Resolved]
  - Off label use [Unknown]
  - Haematochezia [Recovering/Resolving]

NARRATIVE: CASE EVENT DATE: 20141108
